FAERS Safety Report 4380586-6 (Version None)
Quarter: 2004Q2

REPORT INFORMATION
  Report Type: 
  Country: None (occurrence: None)
  Receive Date: 20040610
  Receipt Date: 20040212
  Transmission Date: 20050107
  Serious: Yes (Hospitalization)
  Sender: FDA-Public Use
  Company Number: A03200400441

PATIENT
  Age: 29 Year

DRUGS (1)
  1. ELOXATIN [Suspect]
     Dosage: INTRAVENOUS NOS
     Route: 042
     Dates: start: 20040121, end: 20040121

REACTIONS (2)
  - PNEUMONIA [None]
  - PYREXIA [None]
